FAERS Safety Report 6216470-2 (Version None)
Quarter: 2009Q2

REPORT INFORMATION
  Report Type: 
  Country: None (occurrence: None)
  Receive Date: 20090605
  Receipt Date: 20090525
  Transmission Date: 20091009
  Serious: Yes (Hospitalization)
  Sender: FDA-Public Use
  Company Number: FR-AVENTIS-200911975FR

PATIENT
  Age: 87 Year
  Sex: Male

DRUGS (8)
  1. LASILIX FAIBLE [Suspect]
     Route: 048
     Dates: start: 20090201, end: 20090314
  2. LASILIX FAIBLE [Suspect]
     Route: 048
     Dates: start: 20090315, end: 20090317
  3. LASILIX FAIBLE [Suspect]
     Route: 048
     Dates: start: 20090318
  4. FOZITEC                            /00915301/ [Suspect]
     Route: 048
     Dates: start: 20010101, end: 20090414
  5. BACTRIM DS [Suspect]
     Indication: ERYSIPELAS
     Route: 048
     Dates: start: 20090409, end: 20090414
  6. ALLOPURINOL [Concomitant]
     Indication: DRUG USE FOR UNKNOWN INDICATION
     Route: 048
  7. OMIX [Concomitant]
     Indication: DRUG USE FOR UNKNOWN INDICATION
     Route: 048
  8. VASTAREL [Concomitant]
     Indication: DRUG USE FOR UNKNOWN INDICATION
     Route: 048

REACTIONS (4)
  - HYPERKALAEMIA [None]
  - HYPONATRAEMIA [None]
  - HYPOTENSION [None]
  - RENAL FAILURE [None]
